FAERS Safety Report 18428965 (Version 1)
Quarter: 2020Q4

REPORT INFORMATION
  Report Type: Spontaneous
  Country: US (occurrence: US)
  Receive Date: 20201027
  Receipt Date: 20201027
  Transmission Date: 20210114
  Serious: No
  Sender: FDA-Public Use
  Company Number: US-SA-2020SA294458

PATIENT

DRUGS (2)
  1. LANTUS [Suspect]
     Active Substance: INSULIN GLARGINE
     Indication: TYPE 2 DIABETES MELLITUS
     Dosage: 100 IU, QD
     Route: 065
  2. LANTUS [Suspect]
     Active Substance: INSULIN GLARGINE
     Dosage: 130 IU, QD
     Route: 065

REACTIONS (13)
  - Heart rate increased [Unknown]
  - Hypertension [Unknown]
  - Aura [Recovered/Resolved]
  - Therapeutic response decreased [Unknown]
  - Rectal tenesmus [Unknown]
  - Intentional product use issue [Unknown]
  - Stress [Unknown]
  - Blood glucose decreased [Unknown]
  - Abdominal distension [Unknown]
  - Weight increased [Unknown]
  - Blood glucose increased [Unknown]
  - Weight decreased [Unknown]
  - Bowel movement irregularity [Unknown]
